FAERS Safety Report 7659839-1 (Version None)
Quarter: 2011Q3

REPORT INFORMATION
  Report Type: 
  Country: None (occurrence: None)
  Receive Date: 20110805
  Receipt Date: 20110726
  Transmission Date: 20111222
  Serious: Yes (Other)
  Sender: FDA-Public Use
  Company Number: US-JNJFOC-20110711313

PATIENT
  Sex: Female
  Weight: 102.51 kg

DRUGS (6)
  1. E VITAMIN [Concomitant]
     Route: 048
  2. REMICADE [Suspect]
     Indication: PSORIATIC ARTHROPATHY
     Route: 042
     Dates: start: 20110707, end: 20110707
  3. TOPIRAMATE [Suspect]
     Indication: MIGRAINE
     Route: 048
     Dates: start: 20090101
  4. SINGULAIR [Concomitant]
     Indication: MULTIPLE ALLERGIES
     Route: 048
     Dates: start: 20090101
  5. VITAMIN D [Concomitant]
     Route: 048
  6. NEXIUM [Concomitant]
     Indication: GASTROOESOPHAGEAL REFLUX DISEASE
     Route: 048
     Dates: start: 20090101

REACTIONS (4)
  - APHASIA [None]
  - ATTENTION DEFICIT/HYPERACTIVITY DISORDER [None]
  - HYPERSENSITIVITY [None]
  - RASH ERYTHEMATOUS [None]
